FAERS Safety Report 6107663-3 (Version None)
Quarter: 2009Q1

REPORT INFORMATION
  Report Type: 
  Country: None (occurrence: None)
  Receive Date: 20090309
  Receipt Date: 20090305
  Transmission Date: 20090719
  Serious: Yes (Other)
  Sender: FDA-Public Use
  Company Number: DE-SP-2009-00872

PATIENT
  Age: 69 Year
  Sex: Male

DRUGS (2)
  1. IMMUCYST [Suspect]
     Indication: BLADDER CANCER
     Dosage: NOT REPORTED
     Route: 043
     Dates: start: 20070328, end: 20070503
  2. SPASMOLYT [Concomitant]
     Dosage: ONE HOUR BEFORE FIRST INSTILLATION
     Dates: start: 20070328

REACTIONS (1)
  - LOCAL REACTION [None]
